FAERS Safety Report 6357156-3 (Version None)
Quarter: 2009Q3

REPORT INFORMATION
  Report Type: 
  Country: None (occurrence: None)
  Receive Date: 20090910
  Receipt Date: 20090828
  Transmission Date: 20100115
  Serious: Yes (Hospitalization, Other)
  Sender: FDA-Public Use
  Company Number: OXER20090010

PATIENT
  Age: 62 Year
  Sex: Female

DRUGS (9)
  1. OXYCODONE HCL [Suspect]
     Indication: ARTHRALGIA
     Dosage: 20 MG, ONCE DAILY
     Dates: start: 20050823, end: 20060901
  2. OXYCODONE HCL [Suspect]
     Indication: BACK PAIN
     Dosage: 20 MG, ONCE DAILY
     Dates: start: 20050823, end: 20060901
  3. OXYCONTIN [Suspect]
     Indication: ARTHRALGIA
     Dosage: 20 MG
     Dates: start: 20040809, end: 20090823
  4. OXYCONTIN [Suspect]
     Indication: BACK PAIN
     Dosage: 20 MG
     Dates: start: 20040809, end: 20090823
  5. ATENOLOL [Concomitant]
  6. CEPHALEXIN [Concomitant]
  7. ZOLOFT [Concomitant]
  8. CIPROFLAXACIN [Concomitant]
  9. MUPIROCIN [Concomitant]

REACTIONS (4)
  - DRUG DEPENDENCE [None]
  - OVERDOSE [None]
  - SUICIDE ATTEMPT [None]
  - WITHDRAWAL SYNDROME [None]
